FAERS Safety Report 4543734-0 (Version None)
Quarter: 2005Q1

REPORT INFORMATION
  Report Type: 
  Country: None (occurrence: None)
  Receive Date: 20050103
  Receipt Date: 20041214
  Transmission Date: 20050727
  Serious: Yes (Hospitalization)
  Sender: FDA-Public Use
  Company Number: FR-BRISTOL-MYERS SQUIBB COMPANY-12795233

PATIENT
  Age: 68 Year
  Sex: Male

DRUGS (1)
  1. AVAPRO-HCT TABS [Suspect]
     Indication: HYPERTENSION
     Route: 048
     Dates: end: 20041103

REACTIONS (2)
  - LICHEN PLANUS [None]
  - PRURITUS [None]
